FAERS Safety Report 26129507 (Version 2)
Quarter: 2025Q4

REPORT INFORMATION
  Report Type: Report from Study
  Country: US (occurrence: US)
  Receive Date: 20251208
  Receipt Date: 20251216
  Transmission Date: 20260118
  Serious: Yes (Death, Other)
  Sender: ACADIA PHARMACEUTICALS
  Company Number: US-ACADIA PHARMACEUTICALS INC.-ACA-2025-PIM-012871

PATIENT
  Sex: Male

DRUGS (7)
  1. NUPLAZID [Suspect]
     Active Substance: PIMAVANSERIN TARTRATE
     Indication: Parkinson^s disease psychosis
     Dosage: 34 MILLIGRAM, QD
     Route: 048
     Dates: start: 20241001, end: 20251115
  2. NUPLAZID [Suspect]
     Active Substance: PIMAVANSERIN TARTRATE
     Indication: Dyskinesia
  3. PAROXETINE [Concomitant]
     Active Substance: PAROXETINE
  4. CLONIDINE [Concomitant]
     Active Substance: CLONIDINE
  5. LOSARTAN [Concomitant]
     Active Substance: LOSARTAN
  6. DONEPEZIL [Concomitant]
     Active Substance: DONEPEZIL
  7. NAMENDA [Concomitant]
     Active Substance: MEMANTINE HYDROCHLORIDE

REACTIONS (5)
  - Parkinson^s disease [Fatal]
  - Dementia [Fatal]
  - Chronic kidney disease [Fatal]
  - Cardiac failure [Fatal]
  - Failure to thrive [Fatal]
